FAERS Safety Report 5495455-8 (Version None)
Quarter: 2007Q4

REPORT INFORMATION
  Report Type: 
  Country: None (occurrence: None)
  Receive Date: 20071023
  Receipt Date: 20071017
  Transmission Date: 20080405
  Serious: Yes (Other)
  Sender: FDA-Public Use
  Company Number: 019723

PATIENT
  Age: 43 Year
  Sex: Female

DRUGS (5)
  1. SEASONALE [Suspect]
     Indication: ORAL CONTRACEPTION
     Dosage: ORAL
     Route: 048
     Dates: start: 20070101
  2. LAMICTAL [Suspect]
     Indication: PARTIAL SEIZURES
     Dosage: 300 MG, BID, ORAL
     Route: 048
  3. LEVETIRACETAM [Concomitant]
  4. LAMOTRIGINE [Concomitant]
  5. UNKNOWN ^FORMISINITE^ [Concomitant]

REACTIONS (2)
  - CONDITION AGGRAVATED [None]
  - CONVULSION [None]
